FAERS Safety Report 19840697 (Version 9)
Quarter: 2024Q1

REPORT INFORMATION
  Report Type: Report from Study
  Country: US (occurrence: US)
  Receive Date: 20210915
  Receipt Date: 20240328
  Transmission Date: 20240410
  Serious: Yes (Hospitalization, Other)
  Sender: FDA-Public Use
  Company Number: US-TAKEDA-2021TUS056803

PATIENT
  Sex: Female

DRUGS (2)
  1. HUMAN IMMUNOGLOBULIN G [Suspect]
     Active Substance: HUMAN IMMUNOGLOBULIN G
     Indication: Hypogammaglobulinaemia
     Dosage: UNK
     Route: 058
  2. HUMAN IMMUNOGLOBULIN G [Suspect]
     Active Substance: HUMAN IMMUNOGLOBULIN G
     Indication: Primary immunodeficiency syndrome

REACTIONS (19)
  - Fall [Unknown]
  - Joint injury [Unknown]
  - Post procedural infection [Unknown]
  - Pneumonia [Unknown]
  - Psoriatic arthropathy [Unknown]
  - Rectal haemorrhage [Unknown]
  - COVID-19 [Unknown]
  - Loss of personal independence in daily activities [Unknown]
  - Nail injury [Unknown]
  - Onychalgia [Unknown]
  - Weight decreased [Unknown]
  - Constipation [Unknown]
  - Device infusion issue [Unknown]
  - Infection [Not Recovered/Not Resolved]
  - Head discomfort [Unknown]
  - Chromaturia [Unknown]
  - Pain [Unknown]
  - Dizziness [Unknown]
  - Inappropriate schedule of product administration [Unknown]
